FAERS Safety Report 9406464 (Version 2)
Quarter: 2013Q4

REPORT INFORMATION
  Report Type: Report from Study
  Country: US (occurrence: US)
  Receive Date: 20130718
  Receipt Date: 20131004
  Transmission Date: 20140711
  Serious: Yes (Hospitalization)
  Sender: FDA-Public Use
  Company Number: US-ALEXION-A201301609

PATIENT
  Age: 22 Year
  Sex: Female
  Weight: 106 kg

DRUGS (2)
  1. ECULIZUMAB [Suspect]
     Indication: HAEMOLYTIC URAEMIC SYNDROME
     Dosage: 900 MG, QW
     Route: 042
     Dates: start: 20090807
  2. ECULIZUMAB [Suspect]
     Dosage: 1200 MG, Q2W
     Route: 042

REACTIONS (1)
  - Pancreatitis [Recovered/Resolved]
